FAERS Safety Report 12707493 (Version 1)
Quarter: 2016Q3

REPORT INFORMATION
  Report Type: Spontaneous
  Country: CH (occurrence: CH)
  Receive Date: 20160901
  Receipt Date: 20160901
  Transmission Date: 20161109
  Serious: Yes (Other)
  Sender: FDA-Public Use
  Company Number: CH-TEVA-677631ISR

PATIENT
  Sex: Male
  Weight: 97 kg

DRUGS (5)
  1. CARVEDILOL 25 [Concomitant]
     Indication: PRODUCT USED FOR UNKNOWN INDICATION
     Dosage: 1 DOSAGE FORMS DAILY;
  2. RELVAR ELLIPTA 184/22 [Concomitant]
     Indication: PRODUCT USED FOR UNKNOWN INDICATION
     Dosage: 1 DOSAGE FORMS DAILY; TAKEN IN THE MORNING
     Route: 065
  3. IRFEN-600 LACTAB [Suspect]
     Active Substance: IBUPROFEN
     Dosage: TOOK 1 TABLET IN THE NIGHT AT 02:30 HRS, 5 DAYS PRIOR TO THE DATE OF REPORTING (12-JUL-2016)
     Route: 048
     Dates: start: 20150708, end: 20150708
  4. COMILORID-MEPHA [Concomitant]
     Active Substance: AMILORIDE HYDROCHLORIDE\HYDROCHLOROTHIAZIDE
     Indication: PRODUCT USED FOR UNKNOWN INDICATION
     Dosage: 1 DOSAGE FORMS DAILY;
     Route: 065
  5. RASILEZ 300 [Concomitant]
     Indication: PRODUCT USED FOR UNKNOWN INDICATION
     Dosage: 1 DOSAGE FORMS DAILY;
     Route: 065

REACTIONS (5)
  - Pruritus [Recovered/Resolved]
  - Hyperhidrosis [Recovered/Resolved]
  - Dyspnoea [Recovered/Resolved]
  - Erythema [Recovered/Resolved]
  - Heart rate increased [Recovered/Resolved]

NARRATIVE: CASE EVENT DATE: 201507
